FAERS Safety Report 17505477 (Version 1)
Quarter: 2020Q1

REPORT INFORMATION
  Report Type: Spontaneous
  Country: US (occurrence: US)
  Receive Date: 20200306
  Receipt Date: 20200306
  Transmission Date: 20200409
  Serious: No
  Sender: FDA-Public Use
  Company Number: US-JNJFOC-20200238392

PATIENT
  Sex: Female
  Weight: 90.8 kg

DRUGS (1)
  1. MENS ROGAINE EXTRA STRENGTH [Suspect]
     Active Substance: MINOXIDIL
     Indication: ALOPECIA
     Dosage: LAST ADMINISTRATION DATE- 24-FEB-2020
     Route: 061
     Dates: start: 2019

REACTIONS (4)
  - Product use issue [Unknown]
  - Application site pruritus [Not Recovered/Not Resolved]
  - Intentional product misuse [Unknown]
  - Application site vesicles [Not Recovered/Not Resolved]

NARRATIVE: CASE EVENT DATE: 2019
